FAERS Safety Report 10008832 (Version 1)
Quarter: 2014Q1

REPORT INFORMATION
  Report Type: Spontaneous
  Country: US (occurrence: US)
  Receive Date: 20140313
  Receipt Date: 20140313
  Transmission Date: 20141002
  Serious: No
  Sender: FDA-Public Use
  Company Number: US-INCYTE CORPORATION-2012IN000892

PATIENT
  Age: 70 Year
  Sex: Female

DRUGS (6)
  1. JAKAFI [Suspect]
     Indication: BONE MARROW DISORDER
     Dosage: 20 MG, BID
     Route: 048
     Dates: start: 20120419
  2. JAKAFI [Suspect]
     Indication: MYELOFIBROSIS
  3. DEXLANSOPRAZOLE [Concomitant]
     Dosage: 30 MG, QD
  4. SYNTHROID [Concomitant]
     Dosage: 135 MCG, QD
  5. ASPIRIN [Concomitant]
     Dosage: 81 MG, QOD
  6. PREDNISONE [Concomitant]
     Dosage: 5 MG, QOD

REACTIONS (3)
  - Weight decreased [Unknown]
  - Constipation [Unknown]
  - Decreased appetite [Unknown]
